FAERS Safety Report 9732406 (Version 1)
Quarter: 2013Q4

REPORT INFORMATION
  Report Type: Spontaneous
  Country: US (occurrence: None)
  Receive Date: 20131203
  Receipt Date: 20131203
  Transmission Date: 20140711
  Serious: Yes (Hospitalization, Other)
  Sender: FDA-Public Use
  Company Number: DSU-2013-04828

PATIENT
  Age: 63 Year
  Sex: Female

DRUGS (1)
  1. BENICAR [Suspect]
     Indication: HYPERTENSION
     Dosage: 30 MG (20MG IN AM AND HALF OF 20MG TABLET AT PM),PER ORAL
     Route: 048
     Dates: start: 20051206

REACTIONS (4)
  - Drug administration error [None]
  - Malabsorption [None]
  - Dehydration [None]
  - Renal failure acute [None]
